FAERS Safety Report 19116309 (Version 2)
Quarter: 2021Q2

REPORT INFORMATION
  Report Type: Report from Study
  Country: JP (occurrence: JP)
  Receive Date: 20210409
  Receipt Date: 20210513
  Transmission Date: 20210717
  Serious: Yes (Hospitalization)
  Sender: FDA-Public Use
  Company Number: JP-DSJP-DSJ-2021-104093AA

PATIENT
  Age: 64 Year
  Sex: Female
  Weight: 55 kg

DRUGS (30)
  1. NEUROTROPIN                        /06251301/ [Concomitant]
     Active Substance: ORYCTOLAGUS CUNICULUS SKIN
     Indication: INVASIVE DUCTAL BREAST CARCINOMA
  2. L CARTIN FF [Concomitant]
     Active Substance: LEVOCARNITINE
     Indication: INVASIVE DUCTAL BREAST CARCINOMA
  3. SPIRONOLACTONE. [Concomitant]
     Active Substance: SPIRONOLACTONE
     Indication: HER2 POSITIVE BREAST CANCER
     Dosage: 25 MG, QD
     Route: 048
     Dates: start: 20210106
  4. MS CONTIN [Concomitant]
     Active Substance: MORPHINE SULFATE
     Indication: HER2 POSITIVE BREAST CANCER
     Dosage: 10 MG, BID
     Route: 048
     Dates: start: 20210125
  5. SYMPROIC [Concomitant]
     Active Substance: NALDEMEDINE
     Indication: INVASIVE DUCTAL BREAST CARCINOMA
  6. OPSO [Concomitant]
     Active Substance: MORPHINE HYDROCHLORIDE
     Indication: HER2 POSITIVE BREAST CANCER
     Dosage: 5 MG, AS NEEDED TIME FOR PAIN
     Route: 048
     Dates: start: 20210125
  7. ALOXI [Concomitant]
     Active Substance: PALONOSETRON HYDROCHLORIDE
     Indication: VOMITING
     Dosage: 0.75 MG, QD
     Route: 042
     Dates: start: 20210120, end: 20210120
  8. ENHERTU [Suspect]
     Active Substance: FAM-TRASTUZUMAB DERUXTECAN-NXKI
     Indication: INVASIVE DUCTAL BREAST CARCINOMA
     Dosage: 4.4 MG/KG, ONCE EVERY 3 WK
     Route: 041
     Dates: start: 20210210, end: 20210210
  9. FUROSEMIDE. [Concomitant]
     Active Substance: FUROSEMIDE
     Indication: INVASIVE DUCTAL BREAST CARCINOMA
  10. DECADRON [Concomitant]
     Active Substance: DEXAMETHASONE
     Indication: INVASIVE DUCTAL BREAST CARCINOMA
  11. EMEND [Concomitant]
     Active Substance: APREPITANT
     Indication: VOMITING
     Dosage: 125 MG, QD
     Route: 048
     Dates: start: 20210210, end: 20210210
  12. FUROSEMIDE. [Concomitant]
     Active Substance: FUROSEMIDE
     Indication: HER2 POSITIVE BREAST CANCER
     Dosage: 40 MG, QD
     Route: 048
     Dates: start: 20210104
  13. NEXIUM [Concomitant]
     Active Substance: ESOMEPRAZOLE MAGNESIUM
     Indication: HER2 POSITIVE BREAST CANCER
     Dosage: 20 MG, QD
     Route: 048
     Dates: start: 20210128
  14. OPSO [Concomitant]
     Active Substance: MORPHINE HYDROCHLORIDE
     Indication: INVASIVE DUCTAL BREAST CARCINOMA
  15. SYMPROIC [Concomitant]
     Active Substance: NALDEMEDINE
     Indication: HER2 POSITIVE BREAST CANCER
     Dosage: 0.2 MG, QD
     Route: 048
     Dates: start: 20210130
  16. NEXIUM [Concomitant]
     Active Substance: ESOMEPRAZOLE MAGNESIUM
     Indication: INVASIVE DUCTAL BREAST CARCINOMA
  17. HUSCODE [Concomitant]
     Active Substance: CHLORPHENIRAMINE MALEATE\DIHYDROCODEINE PHOSPHATE\METHYLEPHEDRINE HYDROCHLORIDE, DL-
     Indication: INVASIVE DUCTAL BREAST CARCINOMA
  18. LYRICA [Concomitant]
     Active Substance: PREGABALIN
     Indication: HER2 POSITIVE BREAST CANCER
     Dosage: 25 MG, BID
     Route: 048
     Dates: start: 20180723
  19. L CARTIN FF [Concomitant]
     Active Substance: LEVOCARNITINE
     Indication: HER2 POSITIVE BREAST CANCER
     Dosage: 500 MG, BID
     Route: 048
     Dates: start: 20170901
  20. DECADRON [Concomitant]
     Active Substance: DEXAMETHASONE
     Indication: HER2 POSITIVE BREAST CANCER
     Dosage: 4 MG, QD
     Route: 048
     Dates: start: 20210128
  21. ENHERTU [Suspect]
     Active Substance: FAM-TRASTUZUMAB DERUXTECAN-NXKI
     Indication: HER2 POSITIVE BREAST CANCER
     Dosage: 5.4 MG/KG, ONCE EVERY 3 WK
     Route: 041
     Dates: start: 20210120, end: 20210120
  22. LYRICA [Concomitant]
     Active Substance: PREGABALIN
     Indication: INVASIVE DUCTAL BREAST CARCINOMA
  23. HUSCODE [Concomitant]
     Active Substance: CHLORPHENIRAMINE MALEATE\DIHYDROCODEINE PHOSPHATE\METHYLEPHEDRINE HYDROCHLORIDE, DL-
     Indication: HER2 POSITIVE BREAST CANCER
     Dosage: 9 DF, TID
     Route: 048
     Dates: start: 20210110, end: 20210214
  24. DECADRON                           /00016002/ [Concomitant]
     Active Substance: DEXAMETHASONE
     Indication: VOMITING
     Dosage: 6.6 MG, QD
     Route: 042
     Dates: start: 20210120, end: 20210120
  25. ENHERTU [Suspect]
     Active Substance: FAM-TRASTUZUMAB DERUXTECAN-NXKI
     Dosage: 4.4 MG/KG, ONCE EVERY 3 WK
     Route: 041
     Dates: start: 20210301, end: 20210301
  26. LUNESTA [Concomitant]
     Active Substance: ESZOPICLONE
     Dosage: 2 MG, AS NEEDED TIME FOR SLEEPLESSNESS
     Route: 048
     Dates: start: 20210127
  27. NEUROTROPIN                        /06251301/ [Concomitant]
     Active Substance: ORYCTOLAGUS CUNICULUS SKIN
     Indication: HER2 POSITIVE BREAST CANCER
     Dosage: 8 IU, BID
     Route: 048
     Dates: start: 20180216
  28. SPIRONOLACTONE. [Concomitant]
     Active Substance: SPIRONOLACTONE
     Indication: INVASIVE DUCTAL BREAST CARCINOMA
  29. MS CONTIN [Concomitant]
     Active Substance: MORPHINE SULFATE
     Indication: INVASIVE DUCTAL BREAST CARCINOMA
  30. EMEND [Concomitant]
     Active Substance: APREPITANT
     Dosage: 80 MG, QD
     Route: 048
     Dates: start: 20210211, end: 20210213

REACTIONS (3)
  - Interstitial lung disease [Recovering/Resolving]
  - Nausea [Recovered/Resolved]
  - Neutrophil count decreased [Recovered/Resolved]

NARRATIVE: CASE EVENT DATE: 20210204
